FAERS Safety Report 9535379 (Version 6)
Quarter: 2014Q1

REPORT INFORMATION
  Report Type: Spontaneous
  Country: US (occurrence: US)
  Receive Date: 20130918
  Receipt Date: 20140219
  Transmission Date: 20141002
  Serious: Yes (Hospitalization, Other)
  Sender: FDA-Public Use
  Company Number: US-009507513-1309USA005404

PATIENT
  Sex: Female
  Weight: 51.7 kg

DRUGS (6)
  1. FOSAMAX [Suspect]
     Indication: OSTEOPOROSIS
     Dosage: 70 MG, UNK
     Route: 048
     Dates: start: 20020110, end: 201101
  2. FOSAMAX [Suspect]
     Dosage: UNK
     Route: 048
     Dates: start: 1996, end: 201101
  3. ALENDRONATE SODIUM [Suspect]
     Dosage: 70 MG, UNK
  4. ATORVASTATIN [Concomitant]
     Indication: BLOOD CHOLESTEROL
     Dosage: UNK
     Dates: start: 1995
  5. METOPROLOL [Concomitant]
     Indication: HYPERTENSION
     Dosage: UNK
     Dates: start: 2003
  6. DILTIAZEM HYDROCHLORIDE [Concomitant]
     Indication: HYPERTENSION
     Dosage: UNK
     Dates: start: 2003

REACTIONS (32)
  - Urinary tract infection [Unknown]
  - Tendonitis [Unknown]
  - Spondylolisthesis [Unknown]
  - Adverse event [Unknown]
  - Osteopenia [Unknown]
  - Osteopenia [Unknown]
  - Musculoskeletal pain [Unknown]
  - Back pain [Unknown]
  - Intramedullary rod insertion [Unknown]
  - Skin cancer [Unknown]
  - Breast cancer female [Unknown]
  - Femur fracture [Unknown]
  - Femur fracture [Unknown]
  - Femur fracture [Unknown]
  - Low turnover osteopathy [Unknown]
  - Depression [Unknown]
  - Anxiety [Unknown]
  - Foot fracture [Unknown]
  - Hypertension [Unknown]
  - Breast lump removal [Unknown]
  - Hypertrophic cardiomyopathy [Unknown]
  - Hypertension [Unknown]
  - Anaemia postoperative [Unknown]
  - Coagulopathy [Unknown]
  - Body height decreased [Unknown]
  - Cardiac murmur [Unknown]
  - Nephropathy [Unknown]
  - Pneumonia [Unknown]
  - Osteopenia [Unknown]
  - Dry eye [Unknown]
  - Kyphosis [Unknown]
  - Osteoarthritis [Unknown]
